FAERS Safety Report 4991570-3 (Version None)
Quarter: 2006Q2

REPORT INFORMATION
  Report Type: 
  Country: None (occurrence: None)
  Receive Date: 20060502
  Receipt Date: 20060417
  Transmission Date: 20061013
  Serious: Yes (Death)
  Sender: FDA-Public Use
  Company Number: MC200600273

PATIENT
  Age: 63 Year
  Sex: Female
  Weight: 94.2 kg

DRUGS (14)
  1. ANGIOMAX [Suspect]
     Indication: ANGIOPLASTY
     Dosage: 0.75 MG/KG, BOLUS, INTRAVENOUS; SEE IMAGE
     Route: 042
     Dates: start: 20051206, end: 20051206
  2. ANGIOMAX [Suspect]
     Indication: ANGIOPLASTY
     Dosage: 0.75 MG/KG, BOLUS, INTRAVENOUS; SEE IMAGE
     Route: 042
     Dates: start: 20051206, end: 20051206
  3. LASIX [Concomitant]
  4. KLOR-CON [Concomitant]
  5. PROTONIX [Concomitant]
  6. HEPARIN [Concomitant]
  7. INSULIN [Concomitant]
  8. AMARYL [Concomitant]
  9. SPIRIVA [Concomitant]
  10. ADVAIR DISKUS 100/50 [Concomitant]
  11. ALBUTEROL [Concomitant]
  12. MAXZIDE [Concomitant]
  13. PLAVIX [Concomitant]
  14. INTEGRILIN [Concomitant]

REACTIONS (2)
  - BIFASCICULAR BLOCK [None]
  - POST PROCEDURAL COMPLICATION [None]
